FAERS Safety Report 14659364 (Version 4)
Quarter: 2018Q1

REPORT INFORMATION
  Report Type: Spontaneous
  Country: CH (occurrence: CH)
  Receive Date: 20180320
  Receipt Date: 20180329
  Transmission Date: 20180509
  Serious: Yes (Hospitalization)
  Sender: FDA-Public Use
  Company Number: CH-PFIZER INC-2018107072

PATIENT
  Age: 60 Year
  Sex: Male
  Weight: 80 kg

DRUGS (9)
  1. TORASEMID SANDOZ ECO [Suspect]
     Active Substance: TORSEMIDE
     Indication: DYSPNOEA PAROXYSMAL NOCTURNAL
     Dosage: 10 MG, 1X/DAY
     Route: 048
     Dates: start: 20180221, end: 20180223
  2. BRILIQUE [Suspect]
     Active Substance: TICAGRELOR
     Dosage: 90 MG, 2X/DAY
     Route: 048
     Dates: start: 20180220
  3. PANTOZOL [Suspect]
     Active Substance: PANTOPRAZOLE SODIUM
     Dosage: 40 MG, 1X/DAY
     Route: 048
     Dates: start: 20180221, end: 20180223
  4. CONCOR [Suspect]
     Active Substance: BISOPROLOL FUMARATE
     Dosage: 2.5 MG, 1X/DAY
     Route: 048
     Dates: start: 20180221, end: 20180223
  5. INSPRA [Suspect]
     Active Substance: EPLERENONE
     Dosage: 25 MG, 1X/DAY
     Route: 048
     Dates: start: 20180221, end: 20180223
  6. XARELTO [Suspect]
     Active Substance: RIVAROXABAN
     Dosage: 10 MG, 1X/DAY
     Route: 048
     Dates: start: 20180222, end: 20180223
  7. TRIATEC [Suspect]
     Active Substance: RAMIPRIL
     Dosage: 1.25 MG, 1X/DAY
     Route: 048
     Dates: start: 20180220, end: 20180223
  8. TORASEMID SANDOZ ECO [Suspect]
     Active Substance: TORSEMIDE
     Indication: ORTHOPNOEA
  9. CRESTOR [Suspect]
     Active Substance: ROSUVASTATIN CALCIUM
     Dosage: 20 MG, 1X/DAY
     Route: 048
     Dates: start: 20180220, end: 20180223

REACTIONS (2)
  - Rash maculo-papular [Recovered/Resolved]
  - Drug hypersensitivity [Recovered/Resolved]

NARRATIVE: CASE EVENT DATE: 20180223
